FAERS Safety Report 6489461-4 (Version None)
Quarter: 2009Q4

REPORT INFORMATION
  Report Type: 
  Country: None (occurrence: None)
  Receive Date: 20091210
  Receipt Date: 20091028
  Transmission Date: 20100525
  Serious: No
  Sender: FDA-Public Use
  Company Number: US-AMGEN-KDL368392

PATIENT
  Sex: Female

DRUGS (1)
  1. ENBREL [Suspect]
     Indication: PSORIASIS
     Route: 058

REACTIONS (7)
  - ANIMAL SCRATCH [None]
  - BREAST DISCHARGE [None]
  - EYE IRRITATION [None]
  - FEELING HOT [None]
  - LYMPHADENOPATHY [None]
  - RASH PAPULAR [None]
  - STAPHYLOCOCCAL INFECTION [None]
